FAERS Safety Report 8974904 (Version 7)
Quarter: 2014Q1

REPORT INFORMATION
  Report Type: Report from Study
  Country: CA (occurrence: CA)
  Receive Date: 20121220
  Receipt Date: 20140327
  Transmission Date: 20141002
  Serious: Yes (Other)
  Sender: FDA-Public Use
  Company Number: CA-INCYTE CORPORATION-2012IN002627

PATIENT
  Sex: Male

DRUGS (7)
  1. JAKAVI [Suspect]
     Indication: MYELOFIBROSIS
     Dosage: 20 MG,BID
     Route: 048
     Dates: start: 20121030
  2. JAKAVI [Suspect]
     Dosage: 20 MG, QD
     Route: 048
     Dates: start: 201210
  3. JAKAVI [Suspect]
     Dosage: 20 MG  (ALTERNATING ONE DAY AND THEN BID NEXT DAY)
     Route: 048
  4. JAKAVI [Suspect]
     Dosage: 15 MG, BID
     Route: 048
  5. IRBESARTAN [Concomitant]
     Dosage: UNK
  6. ATENOLOL [Concomitant]
     Dosage: UNK
  7. ANTIHYPERTENSIVES DRUGS [Concomitant]

REACTIONS (5)
  - Blood pressure increased [Unknown]
  - Heart rate increased [Unknown]
  - Asthenia [Not Recovered/Not Resolved]
  - Headache [Unknown]
  - Platelet count decreased [Recovered/Resolved]
